FAERS Safety Report 12210766 (Version 1)
Quarter: 2016Q1

REPORT INFORMATION
  Report Type: Spontaneous
  Country: US (occurrence: None)
  Receive Date: 20160324
  Receipt Date: 20160324
  Transmission Date: 20160526
  Serious: Yes (Death)
  Sender: FDA-Public Use
  Company Number: None

PATIENT
  Age: 57 Year
  Sex: Female
  Weight: 113 kg

DRUGS (23)
  1. PROTAMINE SULFATE. [Suspect]
     Active Substance: PROTAMINE SULFATE
     Indication: INCISION SITE HAEMORRHAGE
     Route: 042
     Dates: start: 20151118
  2. LIDOCAINE. [Concomitant]
     Active Substance: LIDOCAINE
  3. NEOSTIGMINE [Concomitant]
     Active Substance: NEOSTIGMINE
  4. ONDANSETRON [Concomitant]
     Active Substance: ONDANSETRON
  5. LIPITOR [Concomitant]
     Active Substance: ATORVASTATIN CALCIUM
  6. FENTANYL. [Concomitant]
     Active Substance: FENTANYL
  7. PROTAMINE [Concomitant]
     Active Substance: PROTAMINE
  8. PROTONIX EC [Concomitant]
  9. BACTROBAN [Concomitant]
     Active Substance: MUPIROCIN\MUPIROCIN CALCIUM
  10. GABAPENTIN. [Concomitant]
     Active Substance: GABAPENTIN
  11. PERCOCET [Concomitant]
     Active Substance: ACETAMINOPHEN\OXYCODONE HYDROCHLORIDE
  12. PROPOFOL. [Concomitant]
     Active Substance: PROPOFOL
  13. NICOTINE TRANSDERMAL SYSTEM [Concomitant]
     Active Substance: NICOTINE
  14. HUMALOG SLIDING SCALE [Concomitant]
  15. VISIPAQUE [Concomitant]
     Active Substance: IODIXANOL
  16. LANTUS [Concomitant]
     Active Substance: INSULIN GLARGINE
  17. COZAAR [Concomitant]
     Active Substance: LOSARTAN POTASSIUM
  18. MORPHINE [Concomitant]
     Active Substance: MORPHINE
  19. ALBUMIN [Concomitant]
     Active Substance: ALBUMIN (HUMAN)
  20. HEPARIN [Concomitant]
     Active Substance: HEPARIN SODIUM
  21. GLYCOPYRROLATE. [Concomitant]
     Active Substance: GLYCOPYRROLATE
  22. ANCEF [Concomitant]
     Active Substance: CEFAZOLIN SODIUM
  23. ROCURONIUM [Concomitant]
     Active Substance: ROCURONIUM BROMIDE

REACTIONS (8)
  - Bradycardia [None]
  - No therapeutic response [None]
  - Pulseless electrical activity [None]
  - End-tidal CO2 decreased [None]
  - Pulse absent [None]
  - Acidosis [None]
  - Cardiac arrest [None]
  - Blood pressure decreased [None]

NARRATIVE: CASE EVENT DATE: 20151118
